FAERS Safety Report 4545330-8 (Version None)
Quarter: 2005Q1

REPORT INFORMATION
  Report Type: 
  Country: None (occurrence: None)
  Receive Date: 20050103
  Receipt Date: 20041130
  Transmission Date: 20050727
  Serious: Yes (Hospitalization)
  Sender: FDA-Public Use
  Company Number: 2004103877

PATIENT
  Age: 92 Year
  Sex: Male

DRUGS (7)
  1. CELEBRA [Suspect]
     Indication: ILL-DEFINED DISORDER
     Dosage: 20 MG (20 MG, 1 IN 1 D), ORAL
     Route: 048
     Dates: end: 20041104
  2. PROCHLORPERAZINE [Concomitant]
  3. ALLOPURINO (ALLOPURINOL) [Concomitant]
  4. ZOPICLONE(ZOPICLONE) [Concomitant]
  5. OSERELIN (GOSERELIN) [Concomitant]
  6. ISOSORBIDE DINITRATE [Concomitant]
  7. CODEINE PHOSPHATE AND ACETAMINOPHEN [Concomitant]

REACTIONS (2)
  - CONFUSIONAL STATE [None]
  - MYOCARDIAL INFARCTION [None]
